FAERS Safety Report 7062673-7 (Version None)
Quarter: 2010Q4

REPORT INFORMATION
  Report Type: 
  Country: None (occurrence: None)
  Receive Date: 20101026
  Receipt Date: 20091211
  Transmission Date: 20110411
  Serious: No
  Sender: FDA-Public Use
  Company Number: US-PFIZER INC-2009311000

PATIENT
  Sex: Male

DRUGS (4)
  1. LIPITOR [Suspect]
     Indication: BLOOD TRIGLYCERIDES INCREASED
     Route: 048
  2. MIRAPEX [Concomitant]
     Indication: RESTLESS LEGS SYNDROME
     Dosage: 0.25 MG, 2X/DAY
     Route: 048
  3. DETROL LA [Concomitant]
     Indication: PROSTATE CANCER
     Dosage: 4 MG, 1X/DAY
     Route: 048
     Dates: start: 19990101
  4. LEUPROLIDE ACETATE [Concomitant]
     Indication: PROSTATE CANCER
     Dosage: 7.5MG, 1X/3 MONTHS
     Dates: start: 19990101

REACTIONS (1)
  - FATIGUE [None]
